FAERS Safety Report 8275016-8 (Version None)
Quarter: 2012Q2

REPORT INFORMATION
  Report Type: 
  Country: None (occurrence: None)
  Receive Date: 20120411
  Receipt Date: 20120405
  Transmission Date: 20120825
  Serious: Yes (Hospitalization, Other)
  Sender: FDA-Public Use
  Company Number: US-AMGEN-USASP2010008077

PATIENT
  Age: 93 Year
  Sex: Female
  Weight: 63.2 kg

DRUGS (8)
  1. ASPIRIN [Concomitant]
     Dosage: 325 MG, QD
     Route: 048
  2. PROLIA [Suspect]
     Indication: OSTEOPOROSIS POSTMENOPAUSAL
     Dosage: 60 MG, Q6MO
     Route: 058
  3. TAPAZOLE [Concomitant]
     Dosage: 10 MG, Q8H
     Dates: start: 20100623
  4. CARDIZEM LA [Concomitant]
     Dosage: UNK UNK, QD
     Route: 048
     Dates: start: 20100621
  5. INFLUENZA VACCINE [Concomitant]
  6. XALATAN [Concomitant]
     Dosage: 0.005 %, QD
     Route: 047
  7. CALTRATE 600 PLUS IRON AND VITAMIN D [Concomitant]
     Dosage: UNK UNK, QD
     Route: 048
  8. TIMOPTIC [Concomitant]
     Dosage: 0.25 %, QD
     Route: 047

REACTIONS (17)
  - WHEEZING [None]
  - ADVERSE DRUG REACTION [None]
  - PRODUCTIVE COUGH [None]
  - DYSGEUSIA [None]
  - LETHARGY [None]
  - CARDIOMEGALY [None]
  - LEUKOCYTOSIS [None]
  - DECREASED APPETITE [None]
  - DISORIENTATION [None]
  - CONFUSIONAL STATE [None]
  - FEELING COLD [None]
  - INTESTINAL OBSTRUCTION [None]
  - BEDRIDDEN [None]
  - SKIN WARM [None]
  - PNEUMONIA [None]
  - DIVERTICULITIS [None]
  - DIZZINESS [None]
